FAERS Safety Report 8002155-9 (Version None)
Quarter: 2011Q4

REPORT INFORMATION
  Report Type: 
  Country: None (occurrence: None)
  Receive Date: 20111222
  Receipt Date: 20111212
  Transmission Date: 20120403
  Serious: Yes (Other)
  Sender: FDA-Public Use
  Company Number: FR-PFIZER INC-2011104361

PATIENT
  Age: 66 Year
  Sex: Female
  Weight: 57 kg

DRUGS (3)
  1. METHOTREXATE SODIUM [Suspect]
     Indication: RHEUMATOID ARTHRITIS
     Dosage: 10 MG ONCE A WEEK
     Dates: start: 20060101, end: 20110401
  2. TEMSIROLIMUS [Suspect]
     Indication: RENAL CELL CARCINOMA
     Dosage: 25 MG, WEEKLY
     Route: 042
     Dates: start: 20090910, end: 20100201
  3. BEVACIZUMAB [Suspect]
     Indication: RENAL CELL CARCINOMA
     Dosage: 10 MG/KG BI-MENSUALLY
     Route: 042
     Dates: start: 20090910, end: 20100201

REACTIONS (5)
  - B-CELL LYMPHOMA [None]
  - CARDIAC FAILURE [None]
  - PYREXIA [None]
  - RENAL CELL CARCINOMA [None]
  - NEOPLASM MALIGNANT [None]
